FAERS Safety Report 6041044-6 (Version None)
Quarter: 2009Q1

REPORT INFORMATION
  Report Type: 
  Country: None (occurrence: None)
  Receive Date: 20090116
  Receipt Date: 20080801
  Transmission Date: 20090719
  Serious: No
  Sender: FDA-Public Use
  Company Number: US-BRISTOL-MYERS SQUIBB COMPANY-14287486

PATIENT
  Age: 3 Decade
  Sex: Female

DRUGS (3)
  1. ABILIFY [Suspect]
     Indication: PERSONALITY DISORDER
     Dosage: TAKING FOR SEVERAL MONTHS
     Route: 048
  2. ABILIFY [Suspect]
     Indication: EATING DISORDER
     Dosage: TAKING FOR SEVERAL MONTHS
     Route: 048
  3. BENZODIAZEPINES [Concomitant]

REACTIONS (1)
  - PREGNANCY [None]
